FAERS Safety Report 25615282 (Version 2)
Quarter: 2025Q3

REPORT INFORMATION
  Report Type: Spontaneous
  Country: EU (occurrence: EU)
  Receive Date: 20250729
  Receipt Date: 20250811
  Transmission Date: 20251021
  Serious: Yes (Hospitalization, Other)
  Sender: HIKMA
  Company Number: EU-MLMSERVICE-20250709-PI571099-00101-1

PATIENT
  Age: 47 Year
  Sex: Male

DRUGS (11)
  1. BLEOMYCIN [Suspect]
     Active Substance: BLEOMYCIN SULFATE
     Indication: Extragonadal primary germ cell tumour
     Route: 065
     Dates: start: 202311
  2. BLEOMYCIN [Suspect]
     Active Substance: BLEOMYCIN SULFATE
     Indication: Metastases to lung
  3. CARBOPLATIN [Suspect]
     Active Substance: CARBOPLATIN
     Indication: Prophylaxis
     Dosage: PRE-PHASE TREATMENT; ON DAY 1 TO 3
     Route: 065
     Dates: start: 202311
  4. CISPLATIN [Suspect]
     Active Substance: CISPLATIN
  5. CISPLATIN [Suspect]
     Active Substance: CISPLATIN
     Indication: Extragonadal primary germ cell tumour
     Dosage: PRE-PHASE TREATMENT; ON DAY 1 TO 5
     Route: 065
     Dates: start: 202311
  6. CISPLATIN [Suspect]
     Active Substance: CISPLATIN
     Indication: Metastases to lung
  7. ETOPOSIDE [Suspect]
     Active Substance: ETOPOSIDE
  8. ETOPOSIDE [Suspect]
     Active Substance: ETOPOSIDE
  9. ETOPOSIDE [Suspect]
     Active Substance: ETOPOSIDE
     Indication: Extragonadal primary germ cell tumour
     Dosage: ON DAY 1 TO 5
     Route: 065
     Dates: start: 202311
  10. ETOPOSIDE [Suspect]
     Active Substance: ETOPOSIDE
     Indication: Prophylaxis
     Route: 065
     Dates: start: 202311
  11. ETOPOSIDE [Suspect]
     Active Substance: ETOPOSIDE
     Indication: Metastases to lung

REACTIONS (8)
  - Colitis [Unknown]
  - Peritonitis [Unknown]
  - Septic encephalopathy [Recovered/Resolved]
  - Hypoalbuminaemia [Unknown]
  - Hypokalaemia [Unknown]
  - Oedema peripheral [Unknown]
  - Neutropenia [Recovered/Resolved]
  - Nausea [Recovered/Resolved]

NARRATIVE: CASE EVENT DATE: 20230101
